FAERS Safety Report 11649174 (Version 3)
Quarter: 2015Q4

REPORT INFORMATION
  Report Type: Report from Study
  Country: US (occurrence: US)
  Receive Date: 20151021
  Receipt Date: 20151030
  Transmission Date: 20160304
  Serious: Yes (Hospitalization)
  Sender: FDA-Public Use
  Company Number: US-VERTEX PHARMACEUTICALS-2015-003624

PATIENT
  Sex: Male

DRUGS (12)
  1. ACTIGALL [Concomitant]
     Active Substance: URSODIOL
  2. AQUADEKS [Concomitant]
  3. TOBI [Concomitant]
     Active Substance: TOBRAMYCIN
  4. ZITHROMAX [Concomitant]
     Active Substance: AZITHROMYCIN DIHYDRATE
  5. ORKAMBI [Suspect]
     Active Substance: IVACAFTOR\LUMACAFTOR
     Indication: CYSTIC FIBROSIS
     Dosage: 400-250MG, BID
     Route: 048
     Dates: start: 20150724
  6. HYPERTONIC SALINE SOLUTION [Concomitant]
     Active Substance: SODIUM CHLORIDE
  7. CREON [Concomitant]
     Active Substance: PANCRELIPASE AMYLASE\PANCRELIPASE LIPASE\PANCRELIPASE PROTEASE
  8. FERROUS SULFATE [Concomitant]
     Active Substance: FERROUS SULFATE\FERROUS SULFATE, DRIED
  9. SYMBICORT [Concomitant]
     Active Substance: BUDESONIDE\FORMOTEROL FUMARATE DIHYDRATE
  10. VITAMIN D [Concomitant]
     Active Substance: CHOLECALCIFEROL
  11. ALBUTEROL. [Concomitant]
     Active Substance: ALBUTEROL
  12. PREVACID [Concomitant]
     Active Substance: LANSOPRAZOLE

REACTIONS (5)
  - Cystic fibrosis [Unknown]
  - Increased bronchial secretion [Unknown]
  - Respiratory symptom [Recovered/Resolved]
  - Oxygen saturation decreased [Unknown]
  - General physical health deterioration [Unknown]

NARRATIVE: CASE EVENT DATE: 2015
